FAERS Safety Report 24746520 (Version 1)
Quarter: 2024Q4

REPORT INFORMATION
  Report Type: Spontaneous
  Country: CN (occurrence: CN)
  Receive Date: 20241218
  Receipt Date: 20241218
  Transmission Date: 20250115
  Serious: Yes (Hospitalization, Other)
  Sender: ORGANON
  Company Number: CN-ORGANON-O2412CHN001316

PATIENT
  Age: 37 Year
  Sex: Female
  Weight: 60 kg

DRUGS (5)
  1. FOLLITROPIN BETA [Suspect]
     Active Substance: FOLLITROPIN BETA
     Indication: Infertility female
     Dosage: 150 INTERNATIONAL UNIT, QD
     Route: 058
     Dates: start: 20241018, end: 20241025
  2. GONAL-F [Suspect]
     Active Substance: FOLLITROPIN
     Indication: Infertility female
     Dosage: 150 INTERNATIONAL UNIT, QD
     Route: 058
     Dates: start: 20241126, end: 20241126
  3. LUVERIS [Suspect]
     Active Substance: LUTROPIN ALFA
     Indication: Infertility female
     Dosage: 75 INTERNATIONAL UNIT, QD
     Route: 058
     Dates: start: 20241022, end: 20241027
  4. CHORIOGONADOTROPIN ALFA [Suspect]
     Active Substance: CHORIOGONADOTROPIN ALFA
     Indication: Infertility female
     Dosage: 250 MICROGRAM, QD
     Route: 058
     Dates: start: 20241027, end: 20241027
  5. STERILISED WATER FOR INJECTION [Concomitant]
     Indication: Solvent sensitivity
     Dosage: 1 MILLILITER, QD
     Route: 058
     Dates: start: 20241026, end: 20241126

REACTIONS (3)
  - Ovarian hyperstimulation syndrome [Recovering/Resolving]
  - Vaginal haemorrhage [Unknown]
  - Vaginal discharge [Unknown]

NARRATIVE: CASE EVENT DATE: 20241124
